FAERS Safety Report 8182956-7 (Version None)
Quarter: 2012Q1

REPORT INFORMATION
  Report Type: 
  Country: None (occurrence: None)
  Receive Date: 20120305
  Receipt Date: 20120125
  Transmission Date: 20120608
  Serious: No
  Sender: FDA-Public Use
  Company Number: US-BRISTOL-MYERS SQUIBB COMPANY-16367831

PATIENT
  Sex: Female

DRUGS (1)
  1. KOMBIGLYZE XR [Suspect]

REACTIONS (5)
  - DRY MOUTH [None]
  - MUSCULOSKELETAL PAIN [None]
  - SWELLING FACE [None]
  - URTICARIA [None]
  - MUSCLE SPASMS [None]
